FAERS Safety Report 7670067-6 (Version None)
Quarter: 2011Q3

REPORT INFORMATION
  Report Type: 
  Country: None (occurrence: None)
  Receive Date: 20110808
  Receipt Date: 20110802
  Transmission Date: 20111222
  Serious: Yes (Death, Life-Threatening)
  Sender: FDA-Public Use
  Company Number: DE-ASTRAZENECA-2011SE46221

PATIENT
  Age: 85 Year
  Sex: Male

DRUGS (9)
  1. DOMINAL [Suspect]
     Route: 048
     Dates: start: 20040206
  2. JONOSTERIL [Suspect]
     Route: 042
     Dates: start: 20040217
  3. COTRIM [Concomitant]
     Route: 048
     Dates: start: 20040216
  4. GALANTAMINE HYDROBROMIDE [Suspect]
     Route: 048
     Dates: start: 20040216
  5. DOMINAL [Suspect]
     Route: 048
     Dates: start: 20000101, end: 20040205
  6. SEROQUEL [Suspect]
     Route: 048
     Dates: start: 20040216
  7. CALCIUM CARBONATE [Concomitant]
     Route: 048
  8. FUROSEMIDE [Concomitant]
     Indication: BLOOD CREATININE INCREASED
     Route: 048
  9. SEROQUEL [Suspect]
     Route: 048
     Dates: start: 20040209, end: 20040215

REACTIONS (1)
  - CARDIAC FAILURE [None]
